FAERS Safety Report 18039132 (Version 2)
Quarter: 2020Q4

REPORT INFORMATION
  Report Type: Spontaneous
  Country: US (occurrence: US)
  Receive Date: 20200717
  Receipt Date: 20201014
  Transmission Date: 20210113
  Serious: No
  Sender: FDA-Public Use
  Company Number: US-INTRA-CELLULAR THERAPIES, INC.-2020ICT00031

PATIENT
  Age: 34 Year
  Sex: Male
  Weight: 117.91 kg

DRUGS (5)
  1. INSULIN [Suspect]
     Active Substance: INSULIN NOS
     Dosage: UNK
  2. CAPLYTA [Suspect]
     Active Substance: LUMATEPERONE
     Indication: SCHIZOAFFECTIVE DISORDER
  3. INSULIN [Suspect]
     Active Substance: INSULIN NOS
     Dosage: UNK
  4. ADDERALL [Concomitant]
     Active Substance: AMPHETAMINE ASPARTATE\AMPHETAMINE SULFATE\DEXTROAMPHETAMINE SACCHARATE\DEXTROAMPHETAMINE SULFATE
  5. CAPLYTA [Suspect]
     Active Substance: LUMATEPERONE
     Indication: NERVOUS SYSTEM DISORDER
     Dosage: 42 MG, 1X/DAY AT LUNCHTIME
     Dates: start: 2020

REACTIONS (5)
  - Product use in unapproved indication [Not Recovered/Not Resolved]
  - Hypophagia [Unknown]
  - Personality change [Not Recovered/Not Resolved]
  - Memory impairment [Unknown]
  - Soliloquy [Not Recovered/Not Resolved]

NARRATIVE: CASE EVENT DATE: 2020
